FAERS Safety Report 12455731 (Version 1)
Quarter: 2016Q2

REPORT INFORMATION
  Report Type: Spontaneous
  Country: US (occurrence: US)
  Receive Date: 20160610
  Receipt Date: 20160610
  Transmission Date: 20160815
  Serious: Yes (Other)
  Sender: FDA-Public Use
  Company Number: US-PFIZER INC-2016289526

PATIENT
  Sex: Male
  Weight: 112.93 kg

DRUGS (1)
  1. SERTRALINE HCL [Suspect]
     Active Substance: SERTRALINE HYDROCHLORIDE
     Indication: DEPRESSION
     Dosage: 50 MG, DAILY (NIGHT)
     Dates: start: 2016

REACTIONS (4)
  - Pneumonia [Unknown]
  - Sleep apnoea syndrome [Recovering/Resolving]
  - Intentional product misuse [Unknown]
  - Weight increased [Unknown]
